FAERS Safety Report 17201821 (Version 2)
Quarter: 2020Q1

REPORT INFORMATION
  Report Type: Spontaneous
  Country: US (occurrence: US)
  Receive Date: 20191226
  Receipt Date: 20200121
  Transmission Date: 20200409
  Serious: No
  Sender: FDA-Public Use
  Company Number: US-PFIZER INC-2019550077

PATIENT
  Age: 50 Year
  Sex: Female

DRUGS (1)
  1. CELECOXIB. [Suspect]
     Active Substance: CELECOXIB
     Dosage: 200 MG, AS NEEDED (2 TIMES PER DAY WITH FOOD AS NEEDED)
     Route: 048

REACTIONS (1)
  - Drug ineffective [Unknown]
